FAERS Safety Report 18336282 (Version 1)
Quarter: 2020Q4

REPORT INFORMATION
  Report Type: Spontaneous
  Country: FR (occurrence: FR)
  Receive Date: 20201001
  Receipt Date: 20201001
  Transmission Date: 20210113
  Serious: Yes (Other)
  Sender: FDA-Public Use
  Company Number: PHHY2016FR185838

PATIENT
  Age: 54 Year
  Sex: Male
  Weight: 69 kg

DRUGS (4)
  1. BORTEZOMIB. [Suspect]
     Active Substance: BORTEZOMIB
     Indication: PLASMA CELL MYELOMA
     Dosage: 2.38 MG, UNK (DOSAGE FORM: LYOPHILIZED POWDER, ON DAYS 1, 4, 8 AND 11)
     Route: 058
  2. DEXAMETHASONE. [Suspect]
     Active Substance: DEXAMETHASONE
     Indication: PLASMA CELL MYELOMA
     Dosage: 40 MG (DAY 1-2, 8-9, 15-16 AND 22-23.)
     Route: 048
     Dates: start: 20160411, end: 20160720
  3. THALIDOMIDE [Suspect]
     Active Substance: THALIDOMIDE
     Indication: PLASMA CELL MYELOMA
     Dosage: 60 MG (DAY 1-28)
     Route: 048
     Dates: start: 20160411, end: 20160801
  4. VELCADE [Suspect]
     Active Substance: BORTEZOMIB
     Indication: PLASMA CELL MYELOMA
     Dosage: 2.38 MG (ON DAYS 1, 4, 8 AND 11)
     Route: 042
     Dates: start: 20160411, end: 20160715

REACTIONS (1)
  - Peripheral sensory neuropathy [Recovered/Resolved with Sequelae]

NARRATIVE: CASE EVENT DATE: 20160730
